FAERS Safety Report 5236943-9 (Version None)
Quarter: 2007Q1

REPORT INFORMATION
  Report Type: 
  Country: None (occurrence: None)
  Receive Date: 20070213
  Receipt Date: 20070212
  Transmission Date: 20070707
  Serious: Yes (Hospitalization)
  Sender: FDA-Public Use
  Company Number: BE-BAYER-200710787GDS

PATIENT
  Age: 38 Year
  Sex: Male
  Weight: 83 kg

DRUGS (3)
  1. AVELOX [Suspect]
     Indication: RESPIRATORY TRACT INFECTION
     Dosage: TOTAL DAILY DOSE: 400 MG  UNIT DOSE: 400 MG
     Route: 048
     Dates: start: 20070131, end: 20070204
  2. MOVICOL [MACROGOL,POTASSIUM CHLORIDE,SODIUM BICARBONATE] [Concomitant]
     Indication: CONSTIPATION
     Route: 048
     Dates: start: 20030101
  3. LYSOMUCIL [Concomitant]
     Indication: RESPIRATORY TRACT INFECTION
     Dosage: TOTAL DAILY DOSE: 600 MG  UNIT DOSE: 200 MG
     Route: 048
     Dates: start: 20070131

REACTIONS (2)
  - HYPOKALAEMIA [None]
  - PALPITATIONS [None]
